FAERS Safety Report 11823929 (Version 1)
Quarter: 2015Q4

REPORT INFORMATION
  Report Type: Spontaneous
  Country: US (occurrence: US)
  Receive Date: 20151210
  Receipt Date: 20151210
  Transmission Date: 20160305
  Serious: Yes (Hospitalization)
  Sender: FDA-Public Use
  Company Number: US-GLAXOSMITHKLINE-US2015GSK170122

PATIENT
  Sex: Female

DRUGS (2)
  1. SEASONAL INFLUENZA VACCINE [Suspect]
     Active Substance: INFLUENZA VIRUS VACCINE
  2. BREO ELLIPTA [Suspect]
     Active Substance: FLUTICASONE FUROATE\VILANTEROL TRIFENATATE
     Indication: CHRONIC OBSTRUCTIVE PULMONARY DISEASE
     Dosage: 100 UNK, UNK
     Dates: start: 2014

REACTIONS (1)
  - Malaise [Unknown]
